FAERS Safety Report 26208183 (Version 1)
Quarter: 2025Q4

REPORT INFORMATION
  Report Type: Spontaneous
  Country: AU (occurrence: AU)
  Receive Date: 20251229
  Receipt Date: 20251229
  Transmission Date: 20260118
  Serious: Yes (Life-Threatening, Hospitalization)
  Sender: ACCORD
  Company Number: AU-Accord-520119

PATIENT
  Age: 29 Year
  Sex: Female
  Weight: 59.8 kg

DRUGS (1)
  1. HYDROXYCHLOROQUINE [Suspect]
     Active Substance: HYDROXYCHLOROQUINE
     Dosage: APPROXIMATING TO 1000 MG/KG MASSIVE OVERDOSE; SELF-ADMINISTERING 300 TABLETS OF 200 MG
     Route: 048

REACTIONS (14)
  - Electrocardiogram QRS complex prolonged [Recovered/Resolved]
  - Ventricular extrasystoles [Recovered/Resolved]
  - Torsade de pointes [Recovered/Resolved]
  - Cardiac arrest [Recovered/Resolved]
  - Hypokalaemia [Recovered/Resolved]
  - Hypoglycaemia [Recovered/Resolved]
  - Mental status changes [Unknown]
  - Hyperkalaemia [Recovered/Resolved]
  - Ventricular arrhythmia [Recovered/Resolved]
  - Bezoar [Recovered/Resolved]
  - Intentional overdose [Unknown]
  - Hypotension [Recovered/Resolved]
  - Suicide attempt [Unknown]
  - Nausea [Recovered/Resolved]
